FAERS Safety Report 8102145-1 (Version None)
Quarter: 2012Q1

REPORT INFORMATION
  Report Type: 
  Country: None (occurrence: None)
  Receive Date: 20120201
  Receipt Date: 20120130
  Transmission Date: 20120608
  Serious: Yes (Death, Hospitalization)
  Sender: FDA-Public Use
  Company Number: GB-AMGEN-GBRCT2011057186

PATIENT
  Age: 81 Year
  Sex: Male

DRUGS (11)
  1. BLINDED DARBEPOETIN ALFA [Suspect]
     Dosage: UNK UNK, QMO
     Route: 058
     Dates: start: 20070601, end: 20111012
  2. BUPRENORPHINE [Concomitant]
     Indication: BACK PAIN
     Dosage: UNK
     Dates: start: 20111025
  3. FUROSEMIDE [Concomitant]
     Dosage: 40 MG, QD
     Dates: end: 20111113
  4. AMOXICILLIN [Concomitant]
     Dosage: UNK
     Dates: start: 20111021
  5. CORTICOSTEROIDS [Concomitant]
     Dosage: UNK
     Dates: start: 20111021
  6. BLINDED PLACEBO [Suspect]
     Indication: CARDIAC FAILURE
     Dosage: UNK UNK, QMO
     Route: 058
     Dates: start: 20070601, end: 20111012
  7. CARVEDILOL [Concomitant]
     Dosage: 25 MG, BID
  8. SPIRONOLACTONE [Concomitant]
     Dosage: 25 MG, UNK
  9. BLINDED DARBEPOETIN ALFA [Suspect]
     Indication: CARDIAC FAILURE
     Dosage: UNK UNK, QMO
     Route: 058
     Dates: start: 20070601, end: 20111012
  10. ENALAPRIL MALEATE [Concomitant]
     Dosage: 10 MG, BID
  11. LEVOTHYROXINE SODIUM [Concomitant]
     Dosage: 100 MUG, UNK

REACTIONS (4)
  - SEPSIS [None]
  - LIVER DISORDER [None]
  - RENAL IMPAIRMENT [None]
  - CARDIAC FAILURE [None]
